FAERS Safety Report 11850648 (Version 4)
Quarter: 2016Q4

REPORT INFORMATION
  Report Type: Spontaneous
  Country: US (occurrence: US)
  Receive Date: 20151218
  Receipt Date: 20161115
  Transmission Date: 20170206
  Serious: No
  Sender: FDA-Public Use
  Company Number: US-JNJFOC-20150821028

PATIENT
  Sex: Male

DRUGS (3)
  1. INVEGA SUSTENNA [Suspect]
     Active Substance: PALIPERIDONE PALMITATE
     Indication: SCHIZOAFFECTIVE DISORDER
     Dosage: VARYING DOSES OF 117 MG TO 156 MG
     Route: 030
     Dates: start: 201208, end: 201403
  2. INVEGA SUSTENNA [Suspect]
     Active Substance: PALIPERIDONE PALMITATE
     Indication: ANXIETY
     Dosage: VARYING DOSES OF 117 MG TO 156 MG
     Route: 030
     Dates: start: 201208, end: 201403
  3. INVEGA SUSTENNA [Suspect]
     Active Substance: PALIPERIDONE PALMITATE
     Indication: DEPRESSION
     Dosage: VARYING DOSES OF 117 MG TO 156 MG
     Route: 030
     Dates: start: 201208, end: 201403

REACTIONS (3)
  - Abnormal weight gain [Unknown]
  - Gynaecomastia [Unknown]
  - Chest pain [Unknown]

NARRATIVE: CASE EVENT DATE: 2013
